FAERS Safety Report 7154256-5 (Version None)
Quarter: 2010Q4

REPORT INFORMATION
  Report Type: 
  Country: None (occurrence: None)
  Receive Date: 20101213
  Receipt Date: 20101207
  Transmission Date: 20110411
  Serious: No
  Sender: FDA-Public Use
  Company Number: US-PFIZER INC-2010140888

PATIENT
  Sex: Female
  Weight: 72.562 kg

DRUGS (7)
  1. TOVIAZ [Suspect]
     Indication: ABDOMINAL PAIN
     Dosage: UNK
     Route: 048
  2. FELDENE [Concomitant]
     Indication: ARTHRITIS
     Dosage: 20 MG, 1X/DAY
     Route: 048
  3. ACETYLSALICYLIC ACID [Concomitant]
     Indication: ANTICOAGULANT THERAPY
     Dosage: UNK
     Route: 048
  4. TESSALON [Concomitant]
     Indication: COUGH
     Dosage: UNK
  5. CENTRUM SILVER [Concomitant]
     Dosage: UNK
     Route: 048
  6. CALCIUM [Concomitant]
     Dosage: UNK
     Route: 048
  7. LIDOCAINE [Concomitant]
     Dosage: UNK

REACTIONS (1)
  - EXPIRED DRUG ADMINISTERED [None]
